FAERS Safety Report 4308540-0 (Version None)
Quarter: 2004Q1

REPORT INFORMATION
  Report Type: 
  Country: None (occurrence: None)
  Receive Date: 20040225
  Receipt Date: 20030102
  Transmission Date: 20041129
  Serious: Yes (Other)
  Sender: FDA-Public Use
  Company Number: WAES 0301USA00085

PATIENT
  Age: 56 Year
  Sex: Female

DRUGS (1)
  1. ZOCOR [Suspect]
     Indication: DYSLIPIDAEMIA
     Dosage: 20 MG/DAILY/PO
     Route: 048
     Dates: start: 20010201

REACTIONS (2)
  - HEPATITIS [None]
  - THYROID FUNCTION TEST ABNORMAL [None]
